FAERS Safety Report 23632533 (Version 1)
Quarter: 2024Q1

REPORT INFORMATION
  Report Type: Spontaneous
  Country: CA (occurrence: CA)
  Receive Date: 20240314
  Receipt Date: 20240314
  Transmission Date: 20240410
  Serious: Yes (Other)
  Sender: FDA-Public Use
  Company Number: CA-AstraZeneca-2024A056736

PATIENT
  Sex: Female
  Weight: 69 kg

DRUGS (1)
  1. TRASTUZUMAB DERUXTECAN [Suspect]
     Active Substance: TRASTUZUMAB DERUXTECAN
     Indication: Breast cancer metastatic
     Dosage: 378 MG, ONCE EVERY 3 WK
     Route: 042

REACTIONS (2)
  - Ankle fracture [Unknown]
  - Off label use [Unknown]
